FAERS Safety Report 16838111 (Version 1)
Quarter: 2019Q3

REPORT INFORMATION
  Report Type: Spontaneous
  Country: JP (occurrence: JP)
  Receive Date: 20190923
  Receipt Date: 20190923
  Transmission Date: 20191005
  Serious: Yes (Other)
  Sender: FDA-Public Use
  Company Number: JP-SUN PHARMACEUTICAL INDUSTRIES LTD-2019RR-221607

PATIENT
  Age: 40 Year
  Sex: Female

DRUGS (4)
  1. DOCETAXEL. [Suspect]
     Active Substance: DOCETAXEL
     Indication: CHEMOTHERAPY
     Route: 065
  2. PEMETREXED. [Suspect]
     Active Substance: PEMETREXED
     Indication: CHEMOTHERAPY
     Dosage: 500 MILLIGRAM/SQ. METER FOR 6 CYCLES
     Route: 065
     Dates: start: 201308
  3. PEMETREXED. [Suspect]
     Active Substance: PEMETREXED
     Dosage: MAINTENANCE PEMETREXED FOR 11 CYCLES WITH PR
     Route: 065
  4. CARBOPLATIN. [Suspect]
     Active Substance: CARBOPLATIN
     Indication: CHEMOTHERAPY
     Dosage: AUC= 6 FOR 6 CYCLES
     Route: 065
     Dates: start: 201308

REACTIONS (2)
  - Disease progression [Unknown]
  - Treatment failure [Unknown]
